FAERS Safety Report 4618546-X (Version None)
Quarter: 2005Q1

REPORT INFORMATION
  Report Type: 
  Country: None (occurrence: None)
  Receive Date: 20050323
  Receipt Date: 20050317
  Transmission Date: 20050727
  Serious: Yes (Hospitalization, Other)
  Sender: FDA-Public Use
  Company Number: 2005006081

PATIENT
  Age: 54 Year
  Sex: Female

DRUGS (1)
  1. TAHOR                    (ATORVASTATIN) [Suspect]
     Indication: HYPERCHOLESTEROLAEMIA
     Dosage: 20 MG (20 MG, 1 IN 1 D)
     Dates: end: 20040701

REACTIONS (16)
  - ALANINE AMINOTRANSFERASE INCREASED [None]
  - ASPARTATE AMINOTRANSFERASE INCREASED [None]
  - BLOOD ALKALINE PHOSPHATASE INCREASED [None]
  - BLOOD AMYLASE INCREASED [None]
  - BLOOD LACTATE DEHYDROGENASE INCREASED [None]
  - BLOOD TRIGLYCERIDES INCREASED [None]
  - CHOLELITHIASIS [None]
  - DRUG INTOLERANCE [None]
  - GAMMA-GLUTAMYLTRANSFERASE INCREASED [None]
  - HIGH DENSITY LIPOPROTEIN DECREASED [None]
  - LABORATORY TEST ABNORMAL [None]
  - LIPASE INCREASED [None]
  - NEUTROPHIL PERCENTAGE INCREASED [None]
  - PANCREATITIS ACUTE [None]
  - TOTAL CHOLESTEROL/HDL RATIO INCREASED [None]
  - WHITE BLOOD CELL COUNT INCREASED [None]
